FAERS Safety Report 13398233 (Version 2)
Quarter: 2017Q2

REPORT INFORMATION
  Report Type: Report from Study
  Country: US (occurrence: US)
  Receive Date: 20170403
  Receipt Date: 20170417
  Transmission Date: 20170830
  Serious: Yes (Hospitalization)
  Sender: FDA-Public Use
  Company Number: US-EXELIXIS-CABO-17008617

PATIENT
  Sex: Male

DRUGS (20)
  1. CABOMETYX [Suspect]
     Active Substance: CABOZANTINIB S-MALATE
     Indication: RENAL CANCER
     Dosage: 40 MG, QD
     Route: 048
     Dates: start: 20170201
  2. PIOGLITAZONE. [Concomitant]
     Active Substance: PIOGLITAZONE
  3. ULORIC [Concomitant]
     Active Substance: FEBUXOSTAT
  4. KLOR-CON [Concomitant]
     Active Substance: POTASSIUM CHLORIDE
  5. LISINOPRIL. [Concomitant]
     Active Substance: LISINOPRIL
  6. VITAMIN B [Concomitant]
     Active Substance: VITAMIN B
  7. AUGMENTIN [Concomitant]
     Active Substance: AMOXICILLIN\CLAVULANATE POTASSIUM
  8. CARVEDILOL. [Concomitant]
     Active Substance: CARVEDILOL
  9. FOLIC ACID. [Concomitant]
     Active Substance: FOLIC ACID
  10. METFORMIN [Concomitant]
     Active Substance: METFORMIN HYDROCHLORIDE
  11. TYLENOL WITH CODEINE [Concomitant]
     Active Substance: ACETAMINOPHEN\CODEINE PHOSPHATE
  12. PREDNISONE. [Concomitant]
     Active Substance: PREDNISONE
  13. FUROSEMIDE. [Concomitant]
     Active Substance: FUROSEMIDE
  14. COLCHICINE. [Concomitant]
     Active Substance: COLCHICINE
  15. LISINOPRIL AND HYDROCHLOROTHIAZIDE [Concomitant]
     Active Substance: HYDROCHLOROTHIAZIDE\LISINOPRIL
  16. GABAPENTIN. [Concomitant]
     Active Substance: GABAPENTIN
  17. OMEPRAZOLE. [Concomitant]
     Active Substance: OMEPRAZOLE
  18. TRAMADOL. [Concomitant]
     Active Substance: TRAMADOL
  19. VITAMIN D [Concomitant]
     Active Substance: CHOLECALCIFEROL
  20. GLYBURIDE W/METFORMIN [Concomitant]
     Active Substance: GLYBURIDE\METFORMIN

REACTIONS (7)
  - Skin discolouration [Unknown]
  - Rash [Unknown]
  - Pain [Unknown]
  - Dyspnoea [Unknown]
  - Diarrhoea [Recovering/Resolving]
  - Memory impairment [Unknown]
  - Dysgeusia [Not Recovered/Not Resolved]
